FAERS Safety Report 5732841-2 (Version None)
Quarter: 2008Q2

REPORT INFORMATION
  Report Type: 
  Country: None (occurrence: None)
  Receive Date: 20080507
  Receipt Date: 20080507
  Transmission Date: 20081010
  Serious: Yes (Other)
  Sender: FDA-Public Use
  Company Number: None

PATIENT
  Age: 17 Year
  Sex: Male
  Weight: 47.2 kg

DRUGS (2)
  1. TEV-TROPIN [Suspect]
     Indication: GROWTH HORMONE DEFICIENCY
     Dosage: 2.0 MG QPM SQ
     Route: 058
     Dates: start: 20060719, end: 20080324
  2. STRATTERA [Concomitant]

REACTIONS (3)
  - DIPLOPIA [None]
  - HAEMANGIOMA [None]
  - THROMBOSIS [None]
